FAERS Safety Report 10045930 (Version 2)
Quarter: 2014Q2

REPORT INFORMATION
  Report Type: Spontaneous
  Country: JP (occurrence: JP)
  Receive Date: 20140330
  Receipt Date: 20140404
  Transmission Date: 20141212
  Serious: Yes (Other)
  Sender: FDA-Public Use
  Company Number: JP-MERCK-1403JPN011831

PATIENT
  Age: 78 Year
  Sex: Female
  Weight: 44 kg

DRUGS (2)
  1. ROCURONIUM BROMIDE [Suspect]
     Indication: MAINTENANCE OF ANAESTHESIA
     Dosage: 0.57 MG/KG^-1
  2. SUGAMMADEX SODIUM [Suspect]
     Indication: NEUROMUSCULAR BLOCKADE REVERSAL
     Dosage: 2 MG/KG^-1

REACTIONS (2)
  - Procedural complication [Recovered/Resolved]
  - Drug ineffective [Unknown]
